FAERS Safety Report 7393937-5 (Version None)
Quarter: 2011Q2

REPORT INFORMATION
  Report Type: 
  Country: None (occurrence: None)
  Receive Date: 20110405
  Receipt Date: 20110331
  Transmission Date: 20111010
  Serious: No
  Sender: FDA-Public Use
  Company Number: US-TEVA-274410USA

PATIENT
  Sex: Female
  Weight: 49.94 kg

DRUGS (4)
  1. MIDODRINE HYDROCHLORIDE [Concomitant]
     Indication: HYPOTENSION
  2. FLUTICASONE PROPIONATE [Concomitant]
     Indication: ASTHMA
  3. ALBUTEROL SULFATE AUTOHALER [Suspect]
     Indication: ASTHMA
     Route: 055
     Dates: start: 20100401
  4. ALPRAZOLAM [Concomitant]

REACTIONS (3)
  - BLOOD ALUMINIUM INCREASED [None]
  - MUSCLE SPASMS [None]
  - MYALGIA [None]
